FAERS Safety Report 9502183 (Version 1)
Quarter: 2013Q3

REPORT INFORMATION
  Report Type: Report from Study
  Country: FR (occurrence: FR)
  Receive Date: 20130905
  Receipt Date: 20130905
  Transmission Date: 20140515
  Serious: No
  Sender: FDA-Public Use
  Company Number: PHHY2013FR096576

PATIENT
  Age: 64 Year
  Sex: Female

DRUGS (2)
  1. MYCOPHENOLIC ACID [Suspect]
     Indication: IMMUNOSUPPRESSION
     Dates: start: 20101130
  2. NEORAL [Suspect]
     Indication: IMMUNOSUPPRESSION
     Dates: start: 20110107

REACTIONS (2)
  - Cholestasis [Recovered/Resolved]
  - Cell death [Recovered/Resolved]
